FAERS Safety Report 15193679 (Version 1)
Quarter: 2018Q3

REPORT INFORMATION
  Report Type: Spontaneous
  Country: US (occurrence: US)
  Receive Date: 20180725
  Receipt Date: 20180725
  Transmission Date: 20181010
  Serious: Yes (Hospitalization)
  Sender: FDA-Public Use
  Company Number: US-HORIZON-PRE-0328-2018

PATIENT
  Age: 37 Year
  Sex: Female

DRUGS (2)
  1. BROMOCRIPTINE [Concomitant]
     Active Substance: BROMOCRIPTINE
  2. PREDNISONE. [Suspect]
     Active Substance: PREDNISONE
     Indication: SYSTEMIC LUPUS ERYTHEMATOSUS

REACTIONS (2)
  - Symptom masked [Unknown]
  - Pituitary tumour benign [Unknown]
